FAERS Safety Report 6533615-5 (Version None)
Quarter: 2010Q1

REPORT INFORMATION
  Report Type: 
  Country: None (occurrence: None)
  Receive Date: 20100108
  Receipt Date: 20100108
  Transmission Date: 20100710
  Serious: Yes (Other)
  Sender: FDA-Public Use
  Company Number: None

PATIENT
  Sex: Female
  Weight: 74 kg

DRUGS (15)
  1. ALBUMIN (HUMAN) [Suspect]
     Dosage: 1.875G/KG ONCE DAILY X7DAY
     Dates: start: 20091212, end: 20091212
  2. NIMODIPINE [Concomitant]
  3. MOM [Concomitant]
  4. BISACODYL [Concomitant]
  5. DOCUSATE [Concomitant]
  6. NS IV FLUSH [Concomitant]
  7. NS [Concomitant]
  8. TYLENOL W/ CODEINE NO. 3 [Concomitant]
  9. LARAZEPAM [Concomitant]
  10. MORPHINE [Concomitant]
  11. GRAVOL TAB [Concomitant]
  12. MORPINEL1-5 [Concomitant]
  13. ONDANSETRON [Concomitant]
  14. TYLENOL (CAPLET) [Concomitant]
  15. ELECTROLYTES REPLACEMENT [Concomitant]

REACTIONS (1)
  - RESPIRATORY DISTRESS [None]
